FAERS Safety Report 11690685 (Version 2)
Quarter: 2016Q1

REPORT INFORMATION
  Report Type: Spontaneous
  Country: US (occurrence: US)
  Receive Date: 20151102
  Receipt Date: 20160321
  Transmission Date: 20160525
  Serious: Yes (Hospitalization, Disabling)
  Sender: FDA-Public Use
  Company Number: US-ENDO PHARMACEUTICALS INC.-2015-003689

PATIENT
  Age: 56 Year
  Sex: Male
  Weight: 86.26 kg

DRUGS (1)
  1. DELATESTRYL [Suspect]
     Active Substance: TESTOSTERONE ENANTHATE
     Indication: ANDROGEN REPLACEMENT THERAPY
     Route: 065
     Dates: start: 201008, end: 201101

REACTIONS (7)
  - Accidental overdose [Not Recovered/Not Resolved]
  - Renal infarct [Not Recovered/Not Resolved]
  - Polycythaemia [Not Recovered/Not Resolved]
  - Splenic infarction [Not Recovered/Not Resolved]
  - Thrombosis [Not Recovered/Not Resolved]
  - Aortic aneurysm [Not Recovered/Not Resolved]
  - Hypertensive crisis [Not Recovered/Not Resolved]

NARRATIVE: CASE EVENT DATE: 201008
